FAERS Safety Report 4673270-2 (Version None)
Quarter: 2005Q2

REPORT INFORMATION
  Report Type: 
  Country: None (occurrence: None)
  Receive Date: 20050523
  Receipt Date: 20050523
  Transmission Date: 20051028
  Serious: Yes (Hospitalization)
  Sender: FDA-Public Use
  Company Number: None

PATIENT
  Age: 83 Year
  Sex: Male
  Weight: 63.9 kg

DRUGS (4)
  1. AMIODARONE [Suspect]
  2. FUROSEMIDE [Concomitant]
  3. METOLAZONE [Concomitant]
  4. TAMSULOSIN [Concomitant]

REACTIONS (2)
  - HYPOTENSION [None]
  - SYNCOPE [None]
